FAERS Safety Report 7528767-4 (Version None)
Quarter: 2011Q2

REPORT INFORMATION
  Report Type: 
  Country: None (occurrence: None)
  Receive Date: 20110607
  Receipt Date: 20100609
  Transmission Date: 20111010
  Serious: Yes (Hospitalization, Other)
  Sender: FDA-Public Use
  Company Number: US-ASTRAZENECA-2010SE26989

PATIENT

DRUGS (1)
  1. PRILOSEC OTC [Suspect]
     Route: 048

REACTIONS (6)
  - HYPOTENSION [None]
  - MALAISE [None]
  - VISUAL IMPAIRMENT [None]
  - PYREXIA [None]
  - ANAPHYLACTIC REACTION [None]
  - URTICARIA [None]
